FAERS Safety Report 8978099 (Version 2)
Quarter: 2013Q1

REPORT INFORMATION
  Report Type: Spontaneous
  Country: FR (occurrence: FR)
  Receive Date: 20121221
  Receipt Date: 20130212
  Transmission Date: 20140127
  Serious: Yes (Death, Life-Threatening)
  Sender: FDA-Public Use
  Company Number: FR-MILLENNIUM-2012-08866

PATIENT
  Sex: 0

DRUGS (5)
  1. VELCADE [Suspect]
     Indication: PLASMA CELL MYELOMA
     Dosage: 2.2 MG, UNK
     Route: 065
     Dates: start: 20120217, end: 20121019
  2. PREDNISONE [Suspect]
     Indication: PLASMA CELL MYELOMA
     Dosage: 103 MG, UNK
     Dates: start: 20120217, end: 20121019
  3. MELPHALAN [Suspect]
     Indication: PLASMA CELL MYELOMA
     Dosage: 18 MG, UNK
     Dates: start: 20120217, end: 20121019
  4. ASPERGIC [Concomitant]
     Indication: THROMBOSIS PROPHYLAXIS
     Dosage: 100 MG, UNK
     Dates: start: 20090629
  5. DEXAMETHASONE [Concomitant]
     Indication: PLASMA CELL MYELOMA

REACTIONS (1)
  - Cholangiocarcinoma [Fatal]
